FAERS Safety Report 18680777 (Version 2)
Quarter: 2021Q1

REPORT INFORMATION
  Report Type: Spontaneous
  Country: JP (occurrence: JP)
  Receive Date: 20201230
  Receipt Date: 20210112
  Transmission Date: 20210419
  Serious: Yes (Death)
  Sender: FDA-Public Use
  Company Number: JP-TEVA-2020-JP-1864066

PATIENT
  Age: 82 Year
  Sex: Female
  Weight: 59.1 kg

DRUGS (5)
  1. TRISENOX [Suspect]
     Active Substance: ARSENIC TRIOXIDE
     Indication: ACUTE PROMYELOCYTIC LEUKAEMIA
     Dosage: 8.7 MILLIGRAM DAILY;
     Route: 041
     Dates: start: 20201118, end: 20201130
  2. IDAMYCIN [Suspect]
     Active Substance: IDARUBICIN HYDROCHLORIDE
     Dosage: 13 MILLIGRAM DAILY;
     Route: 065
     Dates: start: 20201203, end: 20201204
  3. MYSLEE [Concomitant]
     Active Substance: ZOLPIDEM TARTRATE
     Dosage: 5 MILLIGRAM DAILY;
     Route: 065
  4. DEPAS [Concomitant]
     Dosage: .5 MILLIGRAM DAILY;
     Route: 065
  5. AVAPRO [Concomitant]
     Active Substance: IRBESARTAN
     Dosage: 100 MILLIGRAM DAILY;
     Route: 065

REACTIONS (2)
  - Sepsis [Fatal]
  - Differentiation syndrome [Fatal]

NARRATIVE: CASE EVENT DATE: 20201201
